FAERS Safety Report 10173147 (Version 1)
Quarter: 2014Q2

REPORT INFORMATION
  Report Type: Spontaneous
  Country: US (occurrence: None)
  Receive Date: 20140514
  Receipt Date: 20140514
  Transmission Date: 20141212
  Serious: Yes (Life-Threatening)
  Sender: FDA-Public Use
  Company Number: None

PATIENT
  Age: 47 Year
  Sex: Male
  Weight: 106.6 kg

DRUGS (1)
  1. LATUDA [Suspect]

REACTIONS (2)
  - Mania [None]
  - Bipolar I disorder [None]
